FAERS Safety Report 9300794 (Version 1)
Quarter: 2013Q2

REPORT INFORMATION
  Report Type: Spontaneous
  Country: US (occurrence: None)
  Receive Date: 20130520
  Receipt Date: 20130520
  Transmission Date: 20140414
  Serious: Yes (Other)
  Sender: FDA-Public Use
  Company Number: None

PATIENT
  Age: 31 Year
  Sex: Male
  Weight: 90.72 kg

DRUGS (2)
  1. HYDROMORPHONE [Suspect]
     Dosage: PT TOOK 4 AND 1/2
     Dates: start: 20120517, end: 20130518
  2. METHADONE [Suspect]

REACTIONS (3)
  - Drug dispensing error [None]
  - Medication error [None]
  - Intercepted medication error [None]
